FAERS Safety Report 9559748 (Version 1)
Quarter: 2013Q3

REPORT INFORMATION
  Report Type: Spontaneous
  Country: FR (occurrence: FR)
  Receive Date: 20130927
  Receipt Date: 20130927
  Transmission Date: 20140515
  Serious: Yes (Other)
  Sender: FDA-Public Use
  Company Number: FR-ASTRAZENECA-2013SE71087

PATIENT
  Sex: Male

DRUGS (2)
  1. MOPRAL [Suspect]
     Route: 048
  2. NSAI [Concomitant]
     Dosage: HIGH DOSAGE

REACTIONS (2)
  - Pharyngeal oedema [Unknown]
  - Oedema peripheral [Unknown]
